FAERS Safety Report 10439584 (Version 1)
Quarter: 2014Q3

REPORT INFORMATION
  Report Type: Spontaneous
  Country: US (occurrence: US)
  Receive Date: 20140908
  Receipt Date: 20140908
  Transmission Date: 20150326
  Serious: No
  Sender: FDA-Public Use
  Company Number: US-BRISTOL-MYERS SQUIBB COMPANY-19991025

PATIENT
  Age: 10 Year
  Sex: Male
  Weight: 47.62 kg

DRUGS (2)
  1. TENEX [Concomitant]
     Active Substance: GUANFACINE HYDROCHLORIDE
  2. ABILIFY [Suspect]
     Active Substance: ARIPIPRAZOLE

REACTIONS (4)
  - Aggression [Unknown]
  - Anger [Unknown]
  - Drug dose omission [Unknown]
  - Crying [Unknown]
